FAERS Safety Report 24035813 (Version 5)
Quarter: 2025Q2

REPORT INFORMATION
  Report Type: Report from Study
  Country: CO (occurrence: CO)
  Receive Date: 20240701
  Receipt Date: 20250418
  Transmission Date: 20250717
  Serious: Yes (Other)
  Sender: GLAXOSMITHKLINE
  Company Number: CO-GLAXOSMITHKLINE-CO2024AMR079421

PATIENT

DRUGS (1)
  1. MEPOLIZUMAB [Suspect]
     Active Substance: MEPOLIZUMAB
     Indication: Asthma
     Dosage: 100 MG, Q4W
     Dates: start: 20230525, end: 20250131

REACTIONS (8)
  - Asphyxia [Not Recovered/Not Resolved]
  - Respiratory distress [Recovering/Resolving]
  - Influenza [Recovering/Resolving]
  - Respiratory tract congestion [Not Recovered/Not Resolved]
  - Asthma [Recovered/Resolved]
  - Illness [Recovering/Resolving]
  - Rhinitis [Recovering/Resolving]
  - Product use in unapproved indication [Unknown]

NARRATIVE: CASE EVENT DATE: 20230525
